FAERS Safety Report 5615855-2 (Version None)
Quarter: 2008Q1

REPORT INFORMATION
  Report Type: 
  Country: None (occurrence: None)
  Receive Date: 20080206
  Receipt Date: 20080124
  Transmission Date: 20080703
  Serious: Yes (Death, Hospitalization)
  Sender: FDA-Public Use
  Company Number: FR-ELI_LILLY_AND_COMPANY-FR_040904855

PATIENT
  Age: 50 Year
  Sex: Female
  Weight: 80 kg

DRUGS (3)
  1. PROZAC [Suspect]
     Indication: BIPOLAR DISORDER
     Dosage: 20 MG, DAILY (1/D)
     Route: 048
     Dates: start: 19950101, end: 20040330
  2. ORAP [Concomitant]
     Indication: BIPOLAR DISORDER
     Dosage: 4 MG, DAILY (1/D)
     Route: 048
     Dates: start: 19940101, end: 20040301
  3. TERALITHE [Concomitant]
     Indication: BIPOLAR DISORDER
     Dosage: 250 MG, DAILY (1/D)
     Route: 048
     Dates: start: 19900101, end: 20040301

REACTIONS (3)
  - ABNORMAL BEHAVIOUR [None]
  - DEATH [None]
  - DRUG INTERACTION [None]
